FAERS Safety Report 25494570 (Version 1)
Quarter: 2025Q2

REPORT INFORMATION
  Report Type: Spontaneous
  Country: KR (occurrence: KR)
  Receive Date: 20250630
  Receipt Date: 20250630
  Transmission Date: 20250716
  Serious: Yes (Other)
  Sender: MYLAN
  Company Number: KR-MYLANLABS-2025M1053544

PATIENT
  Sex: Female
  Weight: 167 kg

DRUGS (8)
  1. CELEBREX [Suspect]
     Active Substance: CELECOXIB
     Indication: Cough
     Dosage: 1 DOSAGE FORM, BID
     Route: 065
     Dates: start: 20230426, end: 20230426
  2. CELEBREX [Suspect]
     Active Substance: CELECOXIB
     Dosage: 1 DOSAGE FORM, BID
     Dates: start: 20230426, end: 20230426
  3. CELEBREX [Suspect]
     Active Substance: CELECOXIB
     Dosage: 1 DOSAGE FORM, BID
     Dates: start: 20230426, end: 20230426
  4. CELEBREX [Suspect]
     Active Substance: CELECOXIB
     Dosage: 1 DOSAGE FORM, BID
     Route: 065
     Dates: start: 20230426, end: 20230426
  5. CELEBREX [Suspect]
     Active Substance: CELECOXIB
     Route: 065
  6. CELEBREX [Suspect]
     Active Substance: CELECOXIB
  7. CELEBREX [Suspect]
     Active Substance: CELECOXIB
  8. CELEBREX [Suspect]
     Active Substance: CELECOXIB
     Route: 065

REACTIONS (2)
  - Angioedema [Recovered/Resolved]
  - Product use in unapproved indication [Unknown]

NARRATIVE: CASE EVENT DATE: 20230426
